FAERS Safety Report 7267671-6 (Version None)
Quarter: 2011Q1

REPORT INFORMATION
  Report Type: 
  Country: None (occurrence: None)
  Receive Date: 20110201
  Receipt Date: 20110125
  Transmission Date: 20110831
  Serious: Yes (Death, Hospitalization)
  Sender: FDA-Public Use
  Company Number: JP-ROCHE-741261

PATIENT
  Age: 40 Year
  Sex: Male

DRUGS (5)
  1. VALGANCICLOVIR HCL [Suspect]
     Indication: CYTOMEGALOVIRUS INFECTION
     Route: 048
     Dates: start: 20091120, end: 20091130
  2. VALGANCICLOVIR HCL [Suspect]
     Route: 048
     Dates: end: 20091206
  3. REYATAZ [Suspect]
     Indication: HIV INFECTION
     Route: 048
     Dates: start: 20090401, end: 20091106
  4. BAKTAR [Suspect]
     Route: 048
     Dates: start: 20091104, end: 20091206
  5. EPZICOM [Suspect]
     Indication: HIV INFECTION
     Route: 048
     Dates: start: 20090401, end: 20091206

REACTIONS (14)
  - MULTI-ORGAN FAILURE [None]
  - LIVER DISORDER [None]
  - CYTOMEGALOVIRUS TEST POSITIVE [None]
  - PSEUDOMONAS INFECTION [None]
  - HYPERURICAEMIA [None]
  - ANGIOIMMUNOBLASTIC T-CELL LYMPHOMA [None]
  - TUMOUR LYSIS SYNDROME [None]
  - HYPERBILIRUBINAEMIA [None]
  - GASTRITIS [None]
  - PNEUMONIA FUNGAL [None]
  - RENAL FAILURE ACUTE [None]
  - HYPERTRIGLYCERIDAEMIA [None]
  - PNEUMONIA STAPHYLOCOCCAL [None]
  - PANCYTOPENIA [None]
